FAERS Safety Report 12136722 (Version 1)
Quarter: 2016Q1

REPORT INFORMATION
  Report Type: Spontaneous
  Country: US (occurrence: None)
  Receive Date: 20160301
  Receipt Date: 20160301
  Transmission Date: 20160526
  Serious: No
  Sender: FDA-Public Use
  Company Number: None

PATIENT
  Sex: Female

DRUGS (6)
  1. PRAVASTATIN [Suspect]
     Active Substance: PRAVASTATIN\PRAVASTATIN SODIUM
  2. PRAVASTATIN [Concomitant]
     Active Substance: PRAVASTATIN\PRAVASTATIN SODIUM
  3. TOUJEO [Concomitant]
     Active Substance: INSULIN GLARGINE
  4. GLIMIPERIDE [Suspect]
     Active Substance: GLIMEPIRIDE
  5. LISINOPRIL. [Concomitant]
     Active Substance: LISINOPRIL
  6. GLIMIPERIDE [Concomitant]
     Active Substance: GLIMEPIRIDE

REACTIONS (3)
  - Malaise [None]
  - Drug dose omission [None]
  - Nasopharyngitis [None]
